FAERS Safety Report 5466608-X (Version None)
Quarter: 2007Q3

REPORT INFORMATION
  Report Type: 
  Country: None (occurrence: None)
  Receive Date: 20070925
  Receipt Date: 20070918
  Transmission Date: 20080115
  Serious: Yes (Other)
  Sender: FDA-Public Use
  Company Number: PHBS2007JP15446

PATIENT
  Age: 22 Year
  Sex: Female

DRUGS (1)
  1. NEORAL [Suspect]
     Indication: PUSTULAR PSORIASIS
     Route: 048

REACTIONS (3)
  - ABORTION INDUCED [None]
  - DRUG EXPOSURE DURING PREGNANCY [None]
  - RASH [None]
